FAERS Safety Report 6716373-0 (Version None)
Quarter: 2010Q2

REPORT INFORMATION
  Report Type: 
  Country: None (occurrence: None)
  Receive Date: 20100507
  Receipt Date: 20100504
  Transmission Date: 20101027
  Serious: Yes (Other)
  Sender: FDA-Public Use
  Company Number: SE-BAYER-201024129GPV

PATIENT
  Age: 59 Year
  Sex: Male

DRUGS (8)
  1. NEXAVAR [Suspect]
     Indication: RENAL CELL CARCINOMA
     Dosage: NEXAVAR STARTED IN THE YEAR 2006/2007
     Route: 048
  2. MIXTARD HUMAN 70/30 [Concomitant]
     Dosage: 40 IU/ML (INSULIN, SUSPENSION FOR INJECTION)
  3. EFFEXOR [Concomitant]
     Route: 048
  4. METOPROLOL [Concomitant]
  5. ENALAPRIL MALEATE [Concomitant]
  6. FURIX [Concomitant]
     Route: 048
  7. TROMBYL [Concomitant]
     Route: 048
  8. SIFROL [Concomitant]
     Route: 048

REACTIONS (4)
  - DIARRHOEA [None]
  - MOOD ALTERED [None]
  - PALMAR-PLANTAR ERYTHRODYSAESTHESIA SYNDROME [None]
  - POLYNEUROPATHY [None]
